FAERS Safety Report 8214363-2 (Version None)
Quarter: 2012Q1

REPORT INFORMATION
  Report Type: 
  Country: None (occurrence: None)
  Receive Date: 20120316
  Receipt Date: 20120308
  Transmission Date: 20120608
  Serious: Yes (Other)
  Sender: FDA-Public Use
  Company Number: US-JNJFOC-20120304505

PATIENT
  Sex: Female
  Weight: 79.38 kg

DRUGS (8)
  1. FISH OIL [Concomitant]
     Route: 048
  2. SIMPONI [Suspect]
     Indication: RHEUMATOID ARTHRITIS
     Route: 058
     Dates: start: 20110101
  3. ARAVA [Concomitant]
     Indication: RHEUMATOID ARTHRITIS
     Route: 048
  4. LISINOPRIL [Concomitant]
     Indication: BLOOD PRESSURE
     Route: 048
     Dates: start: 20100101
  5. PRILOSEC [Concomitant]
     Route: 048
  6. SIMVASTATIN [Concomitant]
     Indication: BLOOD CHOLESTEROL INCREASED
     Route: 048
     Dates: start: 20100101
  7. VITAMIN D [Concomitant]
     Route: 048
  8. GLUCOSAMINE [Concomitant]
     Route: 048

REACTIONS (1)
  - BLOOD CHOLESTEROL INCREASED [None]
